FAERS Safety Report 7719480-9 (Version None)
Quarter: 2011Q3

REPORT INFORMATION
  Report Type: 
  Country: None (occurrence: None)
  Receive Date: 20110830
  Receipt Date: 20110818
  Transmission Date: 20111222
  Serious: Yes (Hospitalization, Other)
  Sender: FDA-Public Use
  Company Number: FR-ASTRAZENECA-2010SE57223

PATIENT
  Sex: Female

DRUGS (7)
  1. BROMAZEPAM [Concomitant]
     Route: 048
  2. SIMVASTATIN [Concomitant]
     Indication: DYSLIPIDAEMIA
  3. IRESSA [Suspect]
     Indication: LUNG ADENOCARCINOMA
     Route: 048
     Dates: start: 20101020, end: 20110402
  4. TERCIAN [Concomitant]
     Dosage: 40MG/ML, 4 GTT EVERY DAY
     Route: 048
  5. NEXIUM [Concomitant]
     Route: 048
  6. CYCLINE [Concomitant]
     Indication: ACNE
  7. IXEL [Suspect]
     Route: 048
     Dates: start: 20110301, end: 20110402

REACTIONS (1)
  - CYTOLYTIC HEPATITIS [None]
